FAERS Safety Report 6868800-6 (Version None)
Quarter: 2010Q3

REPORT INFORMATION
  Report Type: 
  Country: None (occurrence: None)
  Receive Date: 20100722
  Receipt Date: 20080616
  Transmission Date: 20110219
  Serious: Yes (Other)
  Sender: FDA-Public Use
  Company Number: US-PFIZER INC-2008051788

PATIENT
  Sex: Female
  Weight: 72.727 kg

DRUGS (5)
  1. CHANTIX [Suspect]
     Indication: SMOKING CESSATION THERAPY
     Dates: start: 20070912, end: 20070918
  2. ALL OTHER THERAPEUTIC PRODUCTS [Suspect]
     Indication: VERTIGO
     Dates: start: 20070901
  3. ALL OTHER THERAPEUTIC PRODUCTS [Suspect]
     Indication: DIZZINESS
  4. LANTUS [Concomitant]
  5. NOVOLOG [Concomitant]

REACTIONS (7)
  - DIZZINESS [None]
  - DRUG INEFFECTIVE [None]
  - FATIGUE [None]
  - LETHARGY [None]
  - NAUSEA [None]
  - SOMNOLENCE [None]
  - VERTIGO [None]
